FAERS Safety Report 23061775 (Version 1)
Quarter: 2023Q4

REPORT INFORMATION
  Report Type: Spontaneous
  Country: US (occurrence: US)
  Receive Date: 20231013
  Receipt Date: 20231013
  Transmission Date: 20240110
  Serious: Yes (Life-Threatening, Hospitalization, Other)
  Sender: FDA-Public Use
  Company Number: US-PIRAMAL CRITICAL CARE LIMITED-2023-PPL-000455

PATIENT

DRUGS (1)
  1. SEVOFLURANE [Suspect]
     Active Substance: SEVOFLURANE
     Indication: General anaesthesia
     Dosage: UNK

REACTIONS (8)
  - Shock [Unknown]
  - Multiple organ dysfunction syndrome [Unknown]
  - Drug-induced liver injury [Unknown]
  - Hypoglycaemia [Unknown]
  - Hyporesponsive to stimuli [Unknown]
  - Acute hepatic failure [Unknown]
  - Hypotension [Unknown]
  - Acute kidney injury [Unknown]
